FAERS Safety Report 8051439-7 (Version None)
Quarter: 2012Q1

REPORT INFORMATION
  Report Type: 
  Country: None (occurrence: None)
  Receive Date: 20120117
  Receipt Date: 20120104
  Transmission Date: 20120608
  Serious: Yes (Other)
  Sender: FDA-Public Use
  Company Number: US-ASTRAZENECA-2012SE00691

PATIENT
  Sex: Female

DRUGS (2)
  1. FEMARA [Concomitant]
     Indication: BREAST CANCER
  2. NEXIUM [Suspect]
     Indication: GASTROOESOPHAGEAL REFLUX DISEASE
     Route: 048

REACTIONS (6)
  - BREAST CANCER [None]
  - SINUSITIS [None]
  - HEADACHE [None]
  - TINNITUS [None]
  - VISION BLURRED [None]
  - SOMNOLENCE [None]
